FAERS Safety Report 6149067-3 (Version None)
Quarter: 2009Q2

REPORT INFORMATION
  Report Type: 
  Country: None (occurrence: None)
  Receive Date: 20090406
  Receipt Date: 20090323
  Transmission Date: 20091009
  Serious: Yes (Life-Threatening, Hospitalization)
  Sender: FDA-Public Use
  Company Number: DSJ-2008-13645

PATIENT
  Age: 85 Year
  Sex: Male
  Weight: 48 kg

DRUGS (13)
  1. OLMESARTAN MEDOXOMIL [Suspect]
     Indication: HYPERTENSION
     Dosage: 20 MG (20 MG, 1 IN 1 D), PER ORAL
     Route: 048
     Dates: start: 20050617, end: 20071215
  2. CONIEL (BENIDIPINE HYDROCHLORIDE) (BENIDIPINE HYDROCHLORIDE) [Suspect]
     Indication: HYPERTENSION
     Dosage: 4 MG, (4 MG, 1 IN 1 D), PER ORAL
     Route: 048
     Dates: start: 20051208
  3. URALYT-U (POTASSIUM SODIUM HYDROGEN CITRATE) (ORAL POWDER) (POTASSIUM [Suspect]
     Indication: CALCULUS URINARY
     Dosage: 3 GM (1 GM, 3 IN 1 D), PER ORAL
     Route: 048
     Dates: start: 19930425, end: 20080123
  4. INNOLET 30R (INSULIN HUMAN) (INSULIN HUMAN) [Concomitant]
  5. ADALAT CC [Concomitant]
  6. CARDENALINE (DOXAZOSIN MESILATE) (DOXAZOSIN MESILATE) [Concomitant]
  7. SOLANAX (ALPRAZOLAM) (ALPRAZOLAM) [Concomitant]
  8. METHYCOBAL (MECOBALAMIN) (MECOBALAMIN) [Concomitant]
  9. GOSHAJINKINGAN (HERBAL EXTRACT NOS) (HERBAL EXTRACT NOS) [Concomitant]
  10. ALOSENN (ACHILLEA MILLEFOLIUM, SENNA ALEXANDRINA, LEAF, SENNA ALEXANDR [Concomitant]
  11. PANTOSIN (PANTETHINE) (ORAL POWDER) (PANTETHINE) [Concomitant]
  12. MAGNESIUM OXIDE (MAGNESIUM OXIDE) (ORAL POWDER) (MAGNESIUM OXIDE) [Concomitant]
  13. PURSENNID (SENNA ALEXANDRINA LEAF) (SENNA ALEXANDRINA LEAF) [Concomitant]

REACTIONS (13)
  - BLOOD GLUCOSE INCREASED [None]
  - BLOOD PRESSURE INADEQUATELY CONTROLLED [None]
  - BODY TEMPERATURE DECREASED [None]
  - CONDITION AGGRAVATED [None]
  - DEHYDRATION [None]
  - DIARRHOEA [None]
  - ELECTROCARDIOGRAM T WAVE PEAKED [None]
  - GLYCOSYLATED HAEMOGLOBIN INCREASED [None]
  - HEART RATE DECREASED [None]
  - HYPERKALAEMIA [None]
  - METABOLIC ACIDOSIS [None]
  - RENAL IMPAIRMENT [None]
  - VENTRICULAR ARRHYTHMIA [None]
